FAERS Safety Report 6183131-8 (Version None)
Quarter: 2009Q2

REPORT INFORMATION
  Report Type: 
  Country: None (occurrence: None)
  Receive Date: 20090507
  Receipt Date: 20090504
  Transmission Date: 20091009
  Serious: Yes (Death, Other)
  Sender: FDA-Public Use
  Company Number: NO-ROXANE LABORATORIES, INC.-2009-RO-00449RO

PATIENT
  Age: 25 Year
  Sex: Female

DRUGS (2)
  1. LAMOTRIGINE [Suspect]
     Indication: EPILEPSY
     Dosage: 100MG
  2. VALPROATE SODIUM [Suspect]
     Indication: EPILEPSY

REACTIONS (3)
  - FATIGUE [None]
  - SUDDEN UNEXPLAINED DEATH IN EPILEPSY [None]
  - TREMOR [None]
